FAERS Safety Report 4954963-6 (Version None)
Quarter: 2006Q1

REPORT INFORMATION
  Report Type: 
  Country: None (occurrence: None)
  Receive Date: 20060322
  Receipt Date: 20060316
  Transmission Date: 20060701
  Serious: Yes (Death, Life-Threatening, Other)
  Sender: FDA-Public Use
  Company Number: MC200600184

PATIENT
  Age: 71 Year
  Sex: Male

DRUGS (3)
  1. ANGIOMAX [Suspect]
     Dosage: SEE IMAGE
     Route: 040
     Dates: start: 20060302, end: 20060302
  2. PLAVIX [Concomitant]
  3. ASPIRIN [Concomitant]

REACTIONS (4)
  - ANURIA [None]
  - HAEMORRHAGIC STROKE [None]
  - POST PROCEDURAL COMPLICATION [None]
  - PROCEDURAL HYPERTENSION [None]
